FAERS Safety Report 15046621 (Version 3)
Quarter: 2018Q3

REPORT INFORMATION
  Report Type: Report from Study
  Country: US (occurrence: US)
  Receive Date: 20180621
  Receipt Date: 20180710
  Transmission Date: 20181010
  Serious: Yes (Hospitalization)
  Sender: FDA-Public Use
  Company Number: US-JAZZ-2018-US-000494

PATIENT
  Sex: Female

DRUGS (13)
  1. NUVIGIL [Concomitant]
     Active Substance: ARMODAFINIL
  2. KLONOPIN [Concomitant]
     Active Substance: CLONAZEPAM
  3. LAMISIL [Concomitant]
     Active Substance: TERBINAFINE HYDROCHLORIDE
  4. OMEPRAZOLE. [Concomitant]
     Active Substance: OMEPRAZOLE
  5. XYREM [Suspect]
     Active Substance: SODIUM OXYBATE
     Dosage: 1.5 G, BID
     Route: 048
  6. MINIPRESS [Concomitant]
     Active Substance: PRAZOSIN HYDROCHLORIDE
  7. MEFENAMIC ACID. [Concomitant]
     Active Substance: MEFENAMIC ACID
  8. WELLBUTRIN [Concomitant]
     Active Substance: BUPROPION HYDROCHLORIDE
  9. XYREM [Suspect]
     Active Substance: SODIUM OXYBATE
     Indication: NARCOLEPSY
     Dosage: 2.25 G, BID
     Route: 048
     Dates: start: 201502, end: 201707
  10. ACETAMINOPHEN W/OXYCODONE [Concomitant]
     Active Substance: ACETAMINOPHEN\OXYCODONE HYDROCHLORIDE
  11. XYREM [Suspect]
     Active Substance: SODIUM OXYBATE
     Dosage: 3 G, BID
     Route: 048
     Dates: start: 201708
  12. PROZAC [Concomitant]
     Active Substance: FLUOXETINE HYDROCHLORIDE
  13. XANAX [Concomitant]
     Active Substance: ALPRAZOLAM

REACTIONS (3)
  - Adjustment disorder with depressed mood [Not Recovered/Not Resolved]
  - Intentional product misuse [Unknown]
  - Nightmare [Recovering/Resolving]
